FAERS Safety Report 20682921 (Version 2)
Quarter: 2023Q2

REPORT INFORMATION
  Report Type: Spontaneous
  Country: US (occurrence: US)
  Receive Date: 20220407
  Receipt Date: 20230529
  Transmission Date: 20230721
  Serious: Yes (Other)
  Sender: FDA-Public Use
  Company Number: US-NOVARTISPH-NVSC2022US076728

PATIENT
  Age: 31 Year
  Sex: Female

DRUGS (10)
  1. METOPROLOL [Suspect]
     Active Substance: METOPROLOL
     Indication: Atrial tachycardia
     Dosage: UNK
     Route: 040
  2. METOPROLOL TARTRATE [Suspect]
     Active Substance: METOPROLOL TARTRATE
     Indication: Atrial tachycardia
     Dosage: 100 MG, BID
     Route: 048
  3. PHENYLEPHRINE [Suspect]
     Active Substance: PHENYLEPHRINE HYDROCHLORIDE
     Indication: Atrial tachycardia
     Dosage: UNK
     Route: 042
  4. DILTIAZEM [Suspect]
     Active Substance: DILTIAZEM
     Indication: Atrial tachycardia
     Dosage: UNK
     Route: 040
  5. DILTIAZEM [Suspect]
     Active Substance: DILTIAZEM
     Dosage: 10 MG/MIN
     Route: 065
  6. SOTALOL [Suspect]
     Active Substance: SOTALOL
     Indication: Atrial tachycardia
     Dosage: 40 MG, BID (MAINTENANCE DOSE)
     Route: 065
  7. SOTALOL [Suspect]
     Active Substance: SOTALOL
     Dosage: 120 MG, BID
     Route: 065
  8. FLECAINIDE ACETATE [Suspect]
     Active Substance: FLECAINIDE ACETATE
     Indication: Atrial tachycardia
     Dosage: 100 MG, BID
     Route: 048
  9. ADENOSINE [Suspect]
     Active Substance: ADENOSINE
     Indication: Atrial tachycardia
     Dosage: UNK
     Route: 040
  10. ISOPROTERENOL [Suspect]
     Active Substance: ISOPROTERENOL
     Indication: Atrial tachycardia
     Dosage: UNK
     Route: 065

REACTIONS (2)
  - Premature delivery [Unknown]
  - Maternal exposure during pregnancy [Unknown]
